FAERS Safety Report 18631297 (Version 1)
Quarter: 2020Q4

REPORT INFORMATION
  Report Type: Spontaneous
  Country: US (occurrence: US)
  Receive Date: 20201217
  Receipt Date: 20201217
  Transmission Date: 20210114
  Serious: No
  Sender: FDA-Public Use
  Company Number: US-ENDO PHARMACEUTICALS INC-2020-001739

PATIENT
  Age: 61 Year
  Sex: Male
  Weight: 87.98 kg

DRUGS (1)
  1. XIAFLEX [Suspect]
     Active Substance: COLLAGENASE CLOSTRIDIUM HISTOLYTICUM
     Indication: PEYRONIE^S DISEASE
     Dosage: UNK UNKNOWN, UNKNOWN; CYCLE ONE, INJECTIONS ONE AND TWO
     Route: 026
     Dates: start: 202002

REACTIONS (4)
  - Testicular pain [Unknown]
  - Penile swelling [Unknown]
  - Prostate infection [Unknown]
  - Testicular swelling [Not Recovered/Not Resolved]

NARRATIVE: CASE EVENT DATE: 202002
